FAERS Safety Report 7134230-5 (Version None)
Quarter: 2010Q4

REPORT INFORMATION
  Report Type: 
  Country: None (occurrence: None)
  Receive Date: 20101117
  Receipt Date: 20101104
  Transmission Date: 20110411
  Serious: Yes (Hospitalization)
  Sender: FDA-Public Use
  Company Number: TPG2010A00617

PATIENT
  Age: 69 Year
  Sex: Male

DRUGS (4)
  1. ACTOS [Suspect]
     Indication: TYPE 2 DIABETES MELLITUS
     Dosage: 30 MG PER ORAL ; 45 MG PER ORAL
     Route: 048
     Dates: start: 20090909, end: 20100514
  2. QUINALAPRIL (ACE INHIBITOR NOS) [Concomitant]
  3. ASPIRIN [Concomitant]
  4. SIMVASTATIN [Concomitant]

REACTIONS (4)
  - ACUTE MYOCARDIAL INFARCTION [None]
  - ANGINA PECTORIS [None]
  - CORONARY ARTERY STENOSIS [None]
  - PERIPHERAL COLDNESS [None]
